FAERS Safety Report 19772540 (Version 1)
Quarter: 2021Q3

REPORT INFORMATION
  Report Type: Spontaneous
  Country: US (occurrence: US)
  Receive Date: 20210830
  Receipt Date: 20210830
  Transmission Date: 20211014
  Serious: No
  Sender: FDA-Public Use
  Company Number: None

PATIENT
  Age: 53 Year
  Sex: Female

DRUGS (1)
  1. HUMIRA [Suspect]
     Active Substance: ADALIMUMAB
     Indication: RHEUMATOID ARTHRITIS
     Route: 058
     Dates: start: 20210603

REACTIONS (4)
  - Injection site swelling [None]
  - Injection site reaction [None]
  - Injection site erythema [None]
  - Therapy cessation [None]

NARRATIVE: CASE EVENT DATE: 20210623
